FAERS Safety Report 7546425-7 (Version None)
Quarter: 2011Q2

REPORT INFORMATION
  Report Type: 
  Country: None (occurrence: None)
  Receive Date: 20110614
  Receipt Date: 20110531
  Transmission Date: 20111010
  Serious: No
  Sender: FDA-Public Use
  Company Number: US-B.I. PHARMACEUTICALS,INC./RIDGEFIELD-2011-BP-09716BP

PATIENT
  Sex: Female

DRUGS (4)
  1. PRADAXA [Suspect]
     Dosage: 300 MG
     Route: 048
     Dates: start: 20110115
  2. ZOLOFT [Concomitant]
     Indication: FEELING OF RELAXATION
     Dates: start: 20090101
  3. ZIAC [Concomitant]
     Indication: HYPERTENSION
     Dates: start: 20000101
  4. PRADAXA [Suspect]
     Indication: ATRIAL FIBRILLATION
     Dosage: 300 MG
     Route: 048
     Dates: start: 20110104, end: 20110106

REACTIONS (2)
  - HAEMATOCHEZIA [None]
  - THROAT IRRITATION [None]
